FAERS Safety Report 4865323-0 (Version None)
Quarter: 2005Q4

REPORT INFORMATION
  Report Type: 
  Country: None (occurrence: None)
  Receive Date: 20051223
  Receipt Date: 20040616
  Transmission Date: 20060501
  Serious: Yes (Disabling)
  Sender: FDA-Public Use
  Company Number: 2004AP03245

PATIENT
  Age: 25279 Day
  Sex: Female

DRUGS (10)
  1. ANAPEINE [Suspect]
     Indication: EPIDURAL ANAESTHESIA
     Route: 008
     Dates: start: 20040601, end: 20040601
  2. ANAPEINE [Suspect]
     Dosage: POST-OPERATIVELY
     Route: 008
     Dates: start: 20040601, end: 20040605
  3. MARCAINE [Suspect]
     Indication: SPINAL ANAESTHESIA
     Dosage: SPINAL ISOBARIC INJECTION
     Route: 037
     Dates: start: 20040601, end: 20040601
  4. MARCAINE [Suspect]
     Indication: PAIN
     Dosage: SPINAL ISOBARIC INJECTION
     Route: 037
     Dates: start: 20040601, end: 20040601
  5. MARCAINE [Concomitant]
     Indication: PAIN
     Route: 037
     Dates: start: 20040601, end: 20040601
  6. DIPRIVAN [Concomitant]
     Indication: GENERAL ANAESTHESIA
     Dates: start: 20040601, end: 20040601
  7. KETAMINE HCL [Concomitant]
     Route: 042
     Dates: start: 20040601, end: 20040601
  8. PHYSIO 140 [Concomitant]
     Route: 041
     Dates: start: 20040601, end: 20040601
  9. SALINHES [Concomitant]
     Dates: start: 20040601, end: 20040601
  10. VOLTAREN [Concomitant]
     Indication: PYREXIA
     Route: 054
     Dates: start: 20040602, end: 20040602

REACTIONS (5)
  - ASTHENIA [None]
  - MOVEMENT DISORDER [None]
  - POSTOPERATIVE FEVER [None]
  - PROCEDURAL PAIN [None]
  - SENSORY DISTURBANCE [None]
